FAERS Safety Report 5984257-1 (Version None)
Quarter: 2008Q4

REPORT INFORMATION
  Report Type: 
  Country: None (occurrence: None)
  Receive Date: 20081208
  Receipt Date: 20081016
  Transmission Date: 20090506
  Serious: Yes (Hospitalization)
  Sender: FDA-Public Use
  Company Number: US-AMGEN-QUU308290

PATIENT
  Sex: Female
  Weight: 89.4 kg

DRUGS (7)
  1. ENBREL [Suspect]
     Indication: RHEUMATOID ARTHRITIS
     Route: 058
     Dates: start: 20060101, end: 20080101
  2. METHOTREXATE [Concomitant]
  3. PREDNISONE TAB [Concomitant]
  4. ZANTAC [Concomitant]
  5. ZESTRIL [Concomitant]
  6. PREMARIN [Concomitant]
  7. TOPROL-XL [Concomitant]

REACTIONS (7)
  - ALOPECIA [None]
  - CHOLELITHIASIS [None]
  - GAIT DISTURBANCE [None]
  - JOINT SWELLING [None]
  - RESPIRATORY TRACT INFECTION [None]
  - RHEUMATOID ARTHRITIS [None]
  - SARCOIDOSIS [None]
